FAERS Safety Report 24096812 (Version 1)
Quarter: 2024Q3

REPORT INFORMATION
  Report Type: Spontaneous
  Country: BR (occurrence: BR)
  Receive Date: 20240716
  Receipt Date: 20240716
  Transmission Date: 20241017
  Serious: Yes (Death, Other)
  Sender: PFIZER
  Company Number: BR-PFIZER INC-2017049169

PATIENT
  Age: 71 Year
  Sex: Female

DRUGS (1)
  1. SUTENT [Suspect]
     Active Substance: SUNITINIB MALATE
     Dosage: UNK
     Dates: start: 20170115

REACTIONS (6)
  - Death [Fatal]
  - Nausea [Not Recovered/Not Resolved]
  - Vomiting [Not Recovered/Not Resolved]
  - Eating disorder [Not Recovered/Not Resolved]
  - Pain [Unknown]
  - Pallor [Unknown]

NARRATIVE: CASE EVENT DATE: 20170101
